FAERS Safety Report 9506433 (Version 1)
Quarter: 2013Q1

REPORT INFORMATION
  Report Type: Spontaneous
  Country: US (occurrence: None)
  Receive Date: 20130301
  Receipt Date: 20130301
  Transmission Date: 20140127
  Serious: Yes (Other)
  Sender: FDA-Public Use
  Company Number: US-JNJFOC-20090803753

PATIENT
  Age: 73 Year
  Sex: Female
  Weight: 72.58 kg

DRUGS (5)
  1. MOTRIN IB [Suspect]
     Indication: MUSCULOSKELETAL PAIN
     Route: 048
     Dates: start: 19990219, end: 19990219
  2. LEVOXYL (LEVOTHYROXINE SODIUM) [Concomitant]
  3. CARDIZEM CD (DILTIAZEM HYDROCHLORIDE) [Concomitant]
  4. LOTENSIN (BENZAPRIL HYDROCHLORIDE) [Concomitant]
  5. ESTRADIOL (ESTRADIOL) (GEL) [Concomitant]

REACTIONS (6)
  - Anaphylactoid reaction [None]
  - Pruritus [None]
  - Oedema [None]
  - Dizziness [None]
  - Dyspnoea [None]
  - Angioedema [None]
